FAERS Safety Report 13534248 (Version 1)
Quarter: 2017Q2

REPORT INFORMATION
  Report Type: Spontaneous
  Country: US (occurrence: US)
  Receive Date: 20170510
  Receipt Date: 20170510
  Transmission Date: 20170830
  Serious: Yes (Death)
  Sender: FDA-Public Use
  Company Number: None

PATIENT
  Age: 60 Year
  Sex: Male

DRUGS (2)
  1. GEMCITABINE 1GM [Suspect]
     Active Substance: GEMCITABINE\GEMCITABINE HYDROCHLORIDE
     Indication: LUNG NEOPLASM MALIGNANT
     Dosage: FREQUENCY - EVERY 2 WEEKS?ROUTE - INFUSE
  2. LEUCOVORIN CA 350MG [Suspect]
     Active Substance: LEUCOVORIN CALCIUM
     Indication: LUNG NEOPLASM MALIGNANT
     Dosage: FREQUENCY - EVERY 2 WEEKS?ROUTE - INFUSION

REACTIONS (1)
  - Death [None]

NARRATIVE: CASE EVENT DATE: 20170423
